FAERS Safety Report 19103770 (Version 2)
Quarter: 2021Q4

REPORT INFORMATION
  Report Type: Report from Study
  Country: US (occurrence: US)
  Receive Date: 20210407
  Receipt Date: 20211115
  Transmission Date: 20220304
  Serious: Yes (Other)
  Sender: FDA-Public Use
  Company Number: US-NOVARTISPH-NVSC2021US075718

PATIENT
  Sex: Female

DRUGS (1)
  1. GILENYA [Suspect]
     Active Substance: FINGOLIMOD HYDROCHLORIDE
     Indication: Multiple sclerosis
     Dosage: 0.5 MG, QD
     Route: 048
     Dates: start: 20210127

REACTIONS (3)
  - Transient ischaemic attack [Unknown]
  - Cerebrovascular accident [Unknown]
  - Pain in extremity [Unknown]

NARRATIVE: CASE EVENT DATE: 20210101
